FAERS Safety Report 6726696-7 (Version None)
Quarter: 2010Q2

REPORT INFORMATION
  Report Type: 
  Country: None (occurrence: None)
  Receive Date: 20100514
  Receipt Date: 20100512
  Transmission Date: 20101027
  Serious: Yes (Other)
  Sender: FDA-Public Use
  Company Number: IE-MERCK-1004GBR00003

PATIENT
  Age: 41 Year
  Sex: Male

DRUGS (3)
  1. MONTELUKAST SODIUM [Suspect]
     Indication: ASTHMA
     Route: 048
     Dates: start: 20081010, end: 20100116
  2. BUDESONIDE AND FORMOTEROL FUMARATE [Concomitant]
     Route: 055
  3. TERBUTALINE SULFATE [Concomitant]
     Route: 065

REACTIONS (2)
  - ABDOMINAL DISCOMFORT [None]
  - ABDOMINAL DISTENSION [None]
